FAERS Safety Report 6285392-3 (Version None)
Quarter: 2009Q3

REPORT INFORMATION
  Report Type: 
  Country: None (occurrence: None)
  Receive Date: 20090723
  Receipt Date: 20090715
  Transmission Date: 20100115
  Serious: Yes (Hospitalization, Other)
  Sender: FDA-Public Use
  Company Number: SPV1-2009-01271

PATIENT
  Age: 75 Year
  Sex: Female

DRUGS (7)
  1. FOSRENOL [Suspect]
     Dosage: 750 MG, 2X/DAY, BID,
  2. BISOPROLOL FUMARATE [Concomitant]
  3. AMIODARONE HCL [Concomitant]
  4. BROMAZEPAM (BROMAZEPAM) [Concomitant]
  5. SODIUM BICARBONATE IN PLASTIC CONTAINER [Concomitant]
  6. SODIUM ALGINATE (SODIUM ALGINATE) [Concomitant]
  7. CALCIUM CARBONATE (CALCIUM CARBONATE) [Concomitant]

REACTIONS (14)
  - ABDOMINAL PAIN [None]
  - BLOOD CREATININE INCREASED [None]
  - BLOOD POTASSIUM INCREASED [None]
  - BLOOD UREA INCREASED [None]
  - CANDIDIASIS [None]
  - CEREBRAL ATROPHY [None]
  - CONDITION AGGRAVATED [None]
  - CONFUSIONAL STATE [None]
  - DIVERTICULUM INTESTINAL [None]
  - DIZZINESS [None]
  - FALL [None]
  - MEDICATION RESIDUE [None]
  - PYREXIA [None]
  - SIGMOIDITIS [None]
